FAERS Safety Report 21903723 (Version 1)
Quarter: 2023Q1

REPORT INFORMATION
  Report Type: Spontaneous
  Country: US (occurrence: US)
  Receive Date: 20230124
  Receipt Date: 20230124
  Transmission Date: 20230418
  Serious: No
  Sender: FDA-Public Use
  Company Number: US-BIOVITRUM-2023US01110

PATIENT

DRUGS (2)
  1. SYNAGIS [Suspect]
     Active Substance: PALIVIZUMAB
     Indication: Product used for unknown indication
  2. SYNAGIS [Suspect]
     Active Substance: PALIVIZUMAB
     Dosage: 0.41MG
     Dates: start: 20221206

REACTIONS (3)
  - Wheezing [Unknown]
  - Irritability [Unknown]
  - Crying [Unknown]
